FAERS Safety Report 7914090-2 (Version None)
Quarter: 2011Q4

REPORT INFORMATION
  Report Type: 
  Country: None (occurrence: None)
  Receive Date: 20111114
  Receipt Date: 20111114
  Transmission Date: 20120403
  Serious: Yes (Hospitalization)
  Sender: FDA-Public Use
  Company Number: None

PATIENT
  Age: 44 Year
  Sex: Male
  Weight: 61.7 kg

DRUGS (1)
  1. MELOXICAM [Suspect]
     Indication: PAIN
     Dosage: MG EVERY DAY PO
     Route: 048
     Dates: start: 20110701, end: 20111106

REACTIONS (2)
  - GASTRIC HAEMORRHAGE [None]
  - DUODENAL ULCER [None]
